FAERS Safety Report 10242044 (Version 1)
Quarter: 2014Q2

REPORT INFORMATION
  Report Type: Spontaneous
  Country: GB (occurrence: GB)
  Receive Date: 20140617
  Receipt Date: 20140617
  Transmission Date: 20141212
  Serious: Yes (Other)
  Sender: FDA-Public Use
  Company Number: PHHY2014GB070338

PATIENT
  Age: 55 Year
  Sex: Female
  Weight: 64.41 kg

DRUGS (4)
  1. DOXYCYCLINE [Suspect]
     Indication: LOWER RESPIRATORY TRACT INFECTION
     Dosage: 100 MG, UNK
     Route: 048
  2. FLIXOTIDE [Concomitant]
  3. RAMIPRIL [Concomitant]
  4. SALBUTAMOL [Concomitant]

REACTIONS (4)
  - Mass [Recovering/Resolving]
  - Pain [Recovered/Resolved]
  - Paraesthesia [Recovering/Resolving]
  - Erythema [Recovering/Resolving]
